FAERS Safety Report 7957015-6 (Version None)
Quarter: 2011Q4

REPORT INFORMATION
  Report Type: 
  Country: None (occurrence: None)
  Receive Date: 20111205
  Receipt Date: 20111205
  Transmission Date: 20120403
  Serious: Yes (Hospitalization)
  Sender: FDA-Public Use
  Company Number: None

PATIENT
  Age: 14 Year
  Sex: Female
  Weight: 49.895 kg

DRUGS (1)
  1. NORTRIPTYLINE HCL [Suspect]
     Indication: MIGRAINE
     Dosage: 25MG
     Route: 048
     Dates: start: 20111006, end: 20111106

REACTIONS (2)
  - MIGRAINE [None]
  - SUICIDAL IDEATION [None]
